FAERS Safety Report 13829127 (Version 1)
Quarter: 2017Q3

REPORT INFORMATION
  Report Type: Report from Study
  Country: DE (occurrence: DE)
  Receive Date: 20170803
  Receipt Date: 20170803
  Transmission Date: 20171127
  Serious: Yes (Hospitalization)
  Sender: FDA-Public Use
  Company Number: DE-PFIZER INC-2017329213

PATIENT
  Age: 47 Year
  Sex: Female
  Weight: 65 kg

DRUGS (5)
  1. 5-FU [Suspect]
     Active Substance: FLUOROURACIL
     Indication: OESOPHAGEAL ADENOCARCINOMA
     Dosage: 4470 MG, UNK
     Dates: end: 20170612
  2. RAMUCIRUMAB [Suspect]
     Active Substance: RAMUCIRUMAB
     Indication: OESOPHAGEAL ADENOCARCINOMA
     Dosage: 544 MG, UNK
     Dates: start: 20170526
  3. LEUCOVORIN. [Suspect]
     Active Substance: LEUCOVORIN
     Indication: OESOPHAGEAL ADENOCARCINOMA
     Dosage: 340 MG, UNK
  4. OXALIPLATIN. [Suspect]
     Active Substance: OXALIPLATIN
     Indication: OESOPHAGEAL ADENOCARCINOMA
     Dosage: 145 MG, UNK
  5. DOCETAXEL. [Suspect]
     Active Substance: DOCETAXEL
     Indication: OESOPHAGEAL ADENOCARCINOMA
     Dosage: 85 MG, UNK
     Dates: end: 20170712

REACTIONS (1)
  - Dysphagia [Recovered/Resolved with Sequelae]

NARRATIVE: CASE EVENT DATE: 20170622
